FAERS Safety Report 12572945 (Version 1)
Quarter: 2016Q3

REPORT INFORMATION
  Report Type: Spontaneous
  Country: US (occurrence: US)
  Receive Date: 20160720
  Receipt Date: 20160720
  Transmission Date: 20161109
  Serious: Yes (Other)
  Sender: FDA-Public Use
  Company Number: US-AMGEN-USASP2016081319

PATIENT
  Age: 68 Year
  Sex: Female

DRUGS (1)
  1. PROLIA [Suspect]
     Active Substance: DENOSUMAB
     Indication: OSTEOPOROSIS POSTMENOPAUSAL
     Dosage: UNK, Q6MO
     Route: 065
     Dates: start: 20151231

REACTIONS (15)
  - Musculoskeletal disorder [Unknown]
  - Parathyroid disorder [Unknown]
  - Pain in extremity [Not Recovered/Not Resolved]
  - Bedridden [Unknown]
  - Sinus disorder [Unknown]
  - Pain in jaw [Unknown]
  - Cerumen impaction [Not Recovered/Not Resolved]
  - Pain [Not Recovered/Not Resolved]
  - Thyroid disorder [Unknown]
  - Jaw disorder [Unknown]
  - Eye disorder [Unknown]
  - Arthralgia [Not Recovered/Not Resolved]
  - Groin pain [Not Recovered/Not Resolved]
  - Arthropathy [Unknown]
  - Tooth disorder [Unknown]
